FAERS Safety Report 15264522 (Version 1)
Quarter: 2018Q3

REPORT INFORMATION
  Report Type: Spontaneous
  Country: US (occurrence: US)
  Receive Date: 20180723
  Receipt Date: 20180723
  Transmission Date: 20181010
  Serious: No
  Sender: FDA-Public Use
  Company Number: None

PATIENT
  Age: 10 Year
  Sex: Female

DRUGS (2)
  1. PENNEEDLE UF MINI 31GX5MM (DEVICE) [Suspect]
     Active Substance: DEVICE
     Dates: start: 20180718, end: 20180723
  2. NUTROPIN [Suspect]
     Active Substance: SOMATROPIN

REACTIONS (1)
  - Device dispensing error [None]

NARRATIVE: CASE EVENT DATE: 20180720
